FAERS Safety Report 5192253-X (Version None)
Quarter: 2006Q4

REPORT INFORMATION
  Report Type: 
  Country: None (occurrence: None)
  Receive Date: 20061227
  Receipt Date: 20061218
  Transmission Date: 20070319
  Serious: Yes (Other)
  Sender: FDA-Public Use
  Company Number: US-SANOFI-SYNTHELABO-A03200607557

PATIENT
  Sex: Female
  Weight: 72.1 kg

DRUGS (11)
  1. DILAUDID [Concomitant]
     Dosage: UNK
     Route: 048
  2. CLONIDINE [Concomitant]
     Route: 048
  3. ATENOLOL [Concomitant]
     Route: 048
  4. VYTORIN [Concomitant]
     Route: 048
  5. TRIAMTERENE AND HYDROCHLOROTHIAZIDE [Concomitant]
     Dosage: 75MG/50MG QD
     Route: 048
  6. ESTRADIOL INJ [Concomitant]
     Route: 048
  7. PAROXETINE HCL [Concomitant]
     Route: 048
  8. IBUPROFEN [Concomitant]
     Route: 048
  9. OXYCODONE HCL [Concomitant]
     Route: 048
  10. FENTANYL [Concomitant]
     Dosage: 25 MCG EVERY 72 HOURS
     Route: 062
     Dates: start: 20010101
  11. AMBIEN [Suspect]
     Indication: INSOMNIA
     Route: 048

REACTIONS (8)
  - ABNORMAL BEHAVIOUR [None]
  - AMNESIA [None]
  - BALANCE DISORDER [None]
  - DYSARTHRIA [None]
  - FALL [None]
  - ILL-DEFINED DISORDER [None]
  - LOSS OF CONSCIOUSNESS [None]
  - ROAD TRAFFIC ACCIDENT [None]
